FAERS Safety Report 7657108-7 (Version None)
Quarter: 2011Q3

REPORT INFORMATION
  Report Type: 
  Country: None (occurrence: None)
  Receive Date: 20110804
  Receipt Date: 20101220
  Transmission Date: 20111222
  Serious: No
  Sender: FDA-Public Use
  Company Number: US-GLAXOSMITHKLINE-A0900622A

PATIENT
  Age: 63 Year
  Sex: Female

DRUGS (11)
  1. CALCIUM ACETATE [Concomitant]
  2. SPIRIVA [Concomitant]
  3. MUCINEX [Concomitant]
  4. XOLAIR [Concomitant]
  5. ADVAIR DISKUS 100/50 [Suspect]
     Indication: CHRONIC OBSTRUCTIVE PULMONARY DISEASE
     Route: 055
     Dates: start: 20100101
  6. SYNTHROID [Concomitant]
  7. VENTOLIN HFA [Concomitant]
  8. MULTI-VITAMIN [Concomitant]
  9. VENTOLIN HFA [Suspect]
     Indication: BRONCHOSPASM
     Dosage: 1PUFF VARIABLE DOSE
     Route: 055
     Dates: start: 20081201
  10. ADVAIR DISKUS 100/50 [Concomitant]
     Dosage: 1PUFF TWICE PER DAY
     Route: 055
     Dates: start: 20030301, end: 20100101
  11. FLUTICASONE [Concomitant]

REACTIONS (5)
  - THROAT IRRITATION [None]
  - BRONCHOSPASM PARADOXICAL [None]
  - ADVERSE EVENT [None]
  - DYSPHONIA [None]
  - DRUG INEFFECTIVE [None]
